FAERS Safety Report 6041593-0 (Version None)
Quarter: 2009Q1

REPORT INFORMATION
  Report Type: 
  Country: None (occurrence: None)
  Receive Date: 20090116
  Receipt Date: 20090108
  Transmission Date: 20090719
  Serious: Yes (Hospitalization, Other)
  Sender: FDA-Public Use
  Company Number: B0455216A

PATIENT
  Age: 51 Year
  Sex: Male

DRUGS (2)
  1. LAMIVUDINE [Suspect]
     Indication: HEPATITIS B
     Dosage: 150MG PER DAY
     Route: 065
  2. ADEFOVIR DIPIVOXIL KIT [Suspect]
     Route: 065

REACTIONS (11)
  - ACUTE HEPATIC FAILURE [None]
  - ALANINE AMINOTRANSFERASE INCREASED [None]
  - DRUG INEFFECTIVE [None]
  - DRUG RESISTANCE [None]
  - GENOTYPE DRUG RESISTANCE TEST POSITIVE [None]
  - HEPATIC CIRRHOSIS [None]
  - HEPATIC FAILURE [None]
  - HEPATIC NEOPLASM MALIGNANT [None]
  - VARICES OESOPHAGEAL [None]
  - VIRAEMIA [None]
  - VIRAL INFECTION [None]
